FAERS Safety Report 6751306-2 (Version None)
Quarter: 2010Q2

REPORT INFORMATION
  Report Type: 
  Country: None (occurrence: None)
  Receive Date: 20100602
  Receipt Date: 20100519
  Transmission Date: 20101027
  Serious: Yes (Hospitalization, Other)
  Sender: FDA-Public Use
  Company Number: PHHY2010IT33469

PATIENT
  Age: 74 Year
  Sex: Male

DRUGS (11)
  1. DICLOFENAC [Suspect]
     Indication: ANALGESIC THERAPY
     Dosage: 100 MG
  2. COLCHICINE [Interacting]
     Dosage: 1 MG
     Route: 048
  3. PREDNISONE TAB [Interacting]
     Dosage: 40 MG/DAY
     Route: 048
  4. CARVEDILOL [Concomitant]
     Dosage: 18.75 MG
     Route: 048
  5. SIMVASTATIN [Concomitant]
     Dosage: 20 MG DAILY
  6. RAMIPRIL [Concomitant]
     Dosage: 5 MG
  7. AMIODARONE HYDROCHLORIDE [Concomitant]
     Dosage: 200 MG
  8. METFORMIN HCL [Concomitant]
     Dosage: 750 MG
  9. OMEPRAZOLE [Concomitant]
  10. FUROSEMIDE [Concomitant]
  11. WARFARIN [Concomitant]
     Dosage: 2.5 MG

REACTIONS (15)
  - ABDOMINAL PAIN UPPER [None]
  - ASCITES [None]
  - CHEST PAIN [None]
  - COLOSTOMY [None]
  - CONCOMITANT DISEASE AGGRAVATED [None]
  - DIVERTICULUM [None]
  - DRUG INTERACTION [None]
  - FLATULENCE [None]
  - GASTROINTESTINAL TOXICITY [None]
  - INTESTINAL RESECTION [None]
  - LARGE INTESTINE PERFORATION [None]
  - LEUKOCYTOSIS [None]
  - OLIGURIA [None]
  - PERITONEAL DISORDER [None]
  - RENAL FAILURE ACUTE [None]
